FAERS Safety Report 6699019-X (Version None)
Quarter: 2010Q2

REPORT INFORMATION
  Report Type: 
  Country: None (occurrence: None)
  Receive Date: 20100427
  Receipt Date: 20100222
  Transmission Date: 20101027
  Serious: No
  Sender: FDA-Public Use
  Company Number: US-BAYER-201015193NA

PATIENT
  Age: 88 Year
  Sex: Male
  Weight: 79 kg

DRUGS (9)
  1. ULTRAVIST 300 [Suspect]
     Indication: COMPUTERISED TOMOGRAM ABDOMEN
     Dosage: TOTAL DAILY DOSE: 100 ML  UNIT DOSE: 200 ML
     Route: 042
     Dates: start: 20100222, end: 20100222
  2. PLAVIX [Concomitant]
  3. WARFARIN SODIUM [Concomitant]
  4. NAMENDA [Concomitant]
  5. LIPITOR [Concomitant]
  6. NORVASC [Concomitant]
  7. FAMOTIDINE [Concomitant]
  8. METOPROLOL [Concomitant]
  9. ONE DRUG ILLEGIBLE [Concomitant]

REACTIONS (1)
  - VOMITING [None]
